FAERS Safety Report 8112659-6 (Version None)
Quarter: 2011Q4

REPORT INFORMATION
  Report Type: 
  Country: None (occurrence: None)
  Receive Date: 20111227
  Receipt Date: 20111102
  Transmission Date: 20120403
  Serious: Yes (Other)
  Sender: FDA-Public Use
  Company Number: PHEH2011US06811

PATIENT
  Age: 46 Year
  Sex: Female
  Weight: 75 kg

DRUGS (6)
  1. ZANAFLEX [Concomitant]
  2. BACLOFEN [Concomitant]
  3. AMITRIPTYLINE HCL [Concomitant]
  4. GILENYA [Suspect]
     Indication: MULTIPLE SCLEROSIS
     Dosage: 0.5 MG, QD, ORAL
     Route: 048
     Dates: start: 20110301, end: 20111001
  5. AMANTADINE HCL [Concomitant]
  6. PHENTERMINE [Concomitant]

REACTIONS (1)
  - SINUSITIS [None]
